FAERS Safety Report 5091821-3 (Version None)
Quarter: 2006Q3

REPORT INFORMATION
  Report Type: 
  Country: None (occurrence: None)
  Receive Date: 20060829
  Receipt Date: 20060619
  Transmission Date: 20061208
  Serious: Yes (Other)
  Sender: FDA-Public Use
  Company Number: US-BRISTOL-MYERS SQUIBB COMPANY-13416961

PATIENT
  Age: 6 Decade
  Sex: Female

DRUGS (2)
  1. ERBITUX [Suspect]
     Indication: COLORECTAL CANCER
     Route: 042
  2. BENADRYL [Concomitant]
     Indication: PREMEDICATION

REACTIONS (1)
  - INFUSION RELATED REACTION [None]
